FAERS Safety Report 9069225 (Version 1)
Quarter: 2013Q1

REPORT INFORMATION
  Report Type: Report from Study
  Country: LB (occurrence: LB)
  Receive Date: 20130215
  Receipt Date: 20130215
  Transmission Date: 20140127
  Serious: Yes (Hospitalization)
  Sender: FDA-Public Use
  Company Number: LB-SANOFI-AVENTIS-2013SA011976

PATIENT
  Age: 57 Year
  Sex: Female

DRUGS (13)
  1. LANTUS SOLOSTAR [Suspect]
     Indication: DIABETES MELLITUS
     Dosage: DOSE:30 UNIT(S)
     Route: 058
     Dates: start: 201301
  2. SOLOSTAR [Suspect]
     Indication: DEVICE THERAPY
     Dates: start: 201301
  3. LIPONORM [Concomitant]
     Indication: DYSLIPIDAEMIA
     Route: 048
  4. PRAXILENE [Concomitant]
     Indication: ANGIOPATHY
     Route: 048
  5. CLOPIDOGREL [Concomitant]
     Route: 048
  6. LASIX [Concomitant]
     Route: 048
  7. CORVASAL [Concomitant]
     Indication: ANGINA PECTORIS
     Route: 048
  8. AMARYL [Concomitant]
     Indication: DIABETES MELLITUS
     Route: 048
  9. GLUCOPHAGE [Concomitant]
     Indication: DIABETES MELLITUS
     Route: 048
  10. CONCOR [Concomitant]
     Indication: HYPERTENSION
  11. VALSARTAN [Concomitant]
     Route: 048
  12. TRIMETAZIDINE HYDROCHLORIDE [Concomitant]
     Route: 048
  13. BUDESONIDE/FORMOTEROL [Concomitant]
     Route: 048

REACTIONS (2)
  - Cardiac disorder [Not Recovered/Not Resolved]
  - Venous stenosis [Not Recovered/Not Resolved]
